FAERS Safety Report 23317862 (Version 1)
Quarter: 2023Q4

REPORT INFORMATION
  Report Type: Spontaneous
  Country: US (occurrence: None)
  Receive Date: 20231219
  Receipt Date: 20231219
  Transmission Date: 20240110
  Serious: No
  Sender: FDA-Public Use
  Company Number: US-ROCHE-3409059

PATIENT
  Sex: Male
  Weight: 80.358 kg

DRUGS (5)
  1. GAZYVA [Suspect]
     Active Substance: OBINUTUZUMAB
     Indication: Follicular lymphoma
     Route: 042
  2. ADENOSINE [Concomitant]
     Active Substance: ADENOSINE
  3. ACYCLOVIR [Concomitant]
     Active Substance: ACYCLOVIR
  4. BENDAMUSTINE [Concomitant]
     Active Substance: BENDAMUSTINE
  5. NEULASTA [Concomitant]
     Active Substance: PEGFILGRASTIM

REACTIONS (3)
  - Dyspnoea [Recovered/Resolved]
  - Dizziness [Recovered/Resolved]
  - Nausea [Recovered/Resolved]
